FAERS Safety Report 6192873-X (Version None)
Quarter: 2009Q2

REPORT INFORMATION
  Report Type: 
  Country: None (occurrence: None)
  Receive Date: 20090518
  Receipt Date: 20090504
  Transmission Date: 20091009
  Serious: Yes (Hospitalization)
  Sender: FDA-Public Use
  Company Number: FR-BAXTER-2009BH008139

PATIENT
  Age: 74 Year
  Sex: Male

DRUGS (9)
  1. ENDOXAN BAXTER [Suspect]
     Indication: MICROSCOPIC POLYANGIITIS
     Route: 048
     Dates: start: 20080422
  2. CORTANCYL [Suspect]
     Indication: MICROSCOPIC POLYANGIITIS
     Route: 048
     Dates: start: 20080422
  3. AMARYL [Concomitant]
     Indication: TYPE 2 DIABETES MELLITUS
     Route: 065
  4. OMEPRAZOLE [Concomitant]
     Indication: DRUG USE FOR UNKNOWN INDICATION
     Route: 065
  5. FELODIPINE [Concomitant]
     Indication: DRUG USE FOR UNKNOWN INDICATION
     Route: 065
  6. DIGOXIN [Concomitant]
     Indication: DRUG USE FOR UNKNOWN INDICATION
     Route: 065
  7. PREGABALIN [Concomitant]
     Indication: DRUG USE FOR UNKNOWN INDICATION
     Route: 065
  8. FUROSEMIDE [Concomitant]
     Indication: DRUG USE FOR UNKNOWN INDICATION
     Route: 065
  9. ZOLPIDEM [Concomitant]
     Indication: DRUG USE FOR UNKNOWN INDICATION
     Route: 065

REACTIONS (2)
  - DIABETES MELLITUS INADEQUATE CONTROL [None]
  - HYPERGLYCAEMIA [None]
